FAERS Safety Report 13105369 (Version 1)
Quarter: 2017Q1

REPORT INFORMATION
  Report Type: Spontaneous
  Country: US (occurrence: US)
  Receive Date: 20170111
  Receipt Date: 20170111
  Transmission Date: 20170428
  Serious: No
  Sender: FDA-Public Use
  Company Number: US-WEST-WARD PHARMACEUTICALS CORP.-2016-RO-01053RO

PATIENT
  Sex: Female
  Weight: 70 kg

DRUGS (1)
  1. GALANTAMINE. [Suspect]
     Active Substance: GALANTAMINE
     Indication: DEMENTIA ALZHEIMER^S TYPE
     Dosage: 2 MG
     Route: 048
     Dates: start: 20150622, end: 20150628

REACTIONS (3)
  - Headache [Unknown]
  - Somnolence [Unknown]
  - Abdominal pain upper [Unknown]
